FAERS Safety Report 8949914 (Version 3)
Quarter: 2013Q2

REPORT INFORMATION
  Report Type: Spontaneous
  Country: US (occurrence: US)
  Receive Date: 20121205
  Receipt Date: 20130415
  Transmission Date: 20140414
  Serious: No
  Sender: FDA-Public Use
  Company Number: US-009507513-1211USA012290

PATIENT
  Sex: Female
  Weight: 60.77 kg

DRUGS (2)
  1. IMPLANON [Suspect]
     Indication: CONTRACEPTION
     Dosage: 1 ROD
     Route: 059
     Dates: start: 20120315, end: 20121127
  2. IBUPROFEN [Concomitant]
     Dosage: UNK, PRN

REACTIONS (8)
  - Metrorrhagia [Unknown]
  - Abdominal pain [Unknown]
  - Implant site irritation [Unknown]
  - Device breakage [Unknown]
  - Device damage [Unknown]
  - Implant site scar [Unknown]
  - Abdominal discomfort [Unknown]
  - Product quality issue [Unknown]
